FAERS Safety Report 8029258-7 (Version None)
Quarter: 2012Q1

REPORT INFORMATION
  Report Type: 
  Country: None (occurrence: None)
  Receive Date: 20120106
  Receipt Date: 20111227
  Transmission Date: 20120608
  Serious: Yes (Other)
  Sender: FDA-Public Use
  Company Number: US-DX529-2011DX000107

PATIENT
  Age: 54 Year
  Sex: Female
  Weight: 125 kg

DRUGS (2)
  1. ALL OTHER THERAPEUTIC PRODUCTS [Concomitant]
     Indication: PRODUCT USED FOR UNKNOWN INDICATION
  2. KALBITOR [Suspect]
     Indication: GRANULOCYTES ABNORMAL
     Dates: start: 20111201, end: 20111201

REACTIONS (7)
  - WHEEZING [None]
  - TONGUE BLISTERING [None]
  - LIP BLISTER [None]
  - OFF LABEL USE [None]
  - STRIDOR [None]
  - LIP SWELLING [None]
  - RESPIRATORY DISTRESS [None]
